FAERS Safety Report 12781683 (Version 1)
Quarter: 2016Q3

REPORT INFORMATION
  Report Type: Report from Study
  Country: US (occurrence: US)
  Receive Date: 20160926
  Receipt Date: 20160926
  Transmission Date: 20161109
  Serious: Yes (Other)
  Sender: FDA-Public Use
  Company Number: US-GILEAD-2016-0225222

PATIENT
  Age: 63 Year
  Sex: Male

DRUGS (3)
  1. SYMBICORT [Concomitant]
     Active Substance: BUDESONIDE\FORMOTEROL FUMARATE DIHYDRATE
     Dosage: UNK
     Dates: start: 20160915
  2. LEDIPASVIR/SOFOSBUVIR [Suspect]
     Active Substance: LEDIPASVIR\SOFOSBUVIR
     Indication: CHRONIC HEPATITIS C
     Dosage: 1 DF, QD
     Route: 048
     Dates: start: 20160628
  3. ALBUTEROL                          /00139501/ [Concomitant]
     Active Substance: ALBUTEROL
     Dosage: UNK
     Dates: start: 2013

REACTIONS (13)
  - Wheezing [Unknown]
  - Cold sweat [Not Recovered/Not Resolved]
  - Fatigue [Unknown]
  - Lower respiratory tract congestion [Not Recovered/Not Resolved]
  - Stress [Not Recovered/Not Resolved]
  - Abasia [Unknown]
  - Arthralgia [Unknown]
  - Dyspnoea [Unknown]
  - Asthenia [Unknown]
  - Cough [Not Recovered/Not Resolved]
  - Lethargy [Unknown]
  - Chronic obstructive pulmonary disease [Unknown]
  - Chills [Not Recovered/Not Resolved]

NARRATIVE: CASE EVENT DATE: 2016
